FAERS Safety Report 6733601-6 (Version None)
Quarter: 2010Q2

REPORT INFORMATION
  Report Type: 
  Country: None (occurrence: None)
  Receive Date: 20100520
  Receipt Date: 20100510
  Transmission Date: 20101027
  Serious: Yes (Death, Hospitalization)
  Sender: FDA-Public Use
  Company Number: DE-MILLENNIUM PHARMACEUTICALS, INC.-2010-02572

PATIENT

DRUGS (4)
  1. VELCADE [Suspect]
     Indication: MULTIPLE MYELOMA
  2. REVLIMID [Suspect]
     Indication: MULTIPLE MYELOMA
     Dosage: 15 MG, UNK
     Route: 048
     Dates: end: 20100410
  3. DEXAMETHASONE [Concomitant]
     Dosage: 40 MG, UNK
     Route: 048
     Dates: end: 20100410
  4. FLUCONAZOLE [Concomitant]
     Dosage: 200 MG, UNK
     Route: 048
     Dates: end: 20100410

REACTIONS (2)
  - DEATH [None]
  - ORAL CANDIDIASIS [None]
